FAERS Safety Report 5265746-4 (Version None)
Quarter: 2007Q1

REPORT INFORMATION
  Report Type: 
  Country: None (occurrence: None)
  Receive Date: 20061213
  Receipt Date: 20040130
  Transmission Date: 20070707
  Serious: Yes (Other)
  Sender: FDA-Public Use
  Company Number: 2004UW01620

PATIENT
  Age: 82 Year
  Sex: Male
  Weight: 69.8539 kg

DRUGS (9)
  1. IRESSA [Suspect]
     Indication: NON-SMALL CELL LUNG CANCER METASTATIC
     Dosage: 250 MG QD PO
     Route: 048
     Dates: start: 20040108
  2. MARINOL [Concomitant]
  3. CARDURA [Concomitant]
  4. ACTOS [Concomitant]
  5. METFORMIN HCL [Concomitant]
  6. BETAPACE [Concomitant]
  7. LEXAPRO [Concomitant]
  8. ASPIRIN [Concomitant]
  9. CHEMOTHERAPY [Concomitant]

REACTIONS (5)
  - ARTHRALGIA [None]
  - ASTHENIA [None]
  - CHILLS [None]
  - DECREASED APPETITE [None]
  - RASH [None]
